FAERS Safety Report 18205530 (Version 3)
Quarter: 2020Q3

REPORT INFORMATION
  Report Type: Spontaneous
  Country: US (occurrence: US)
  Receive Date: 20200827
  Receipt Date: 20200921
  Transmission Date: 20201103
  Serious: Yes (Other)
  Sender: FDA-Public Use
  Company Number: US-PFIZER INC-2020332128

PATIENT
  Age: 68 Year
  Sex: Male

DRUGS (1)
  1. CAVERJECT [Suspect]
     Active Substance: ALPROSTADIL
     Indication: ERECTILE DYSFUNCTION
     Dosage: 40 UG, AS NEEDED,MAY BE 2 TIMES OR 3 TIMES A WEEK
     Dates: start: 2013

REACTIONS (2)
  - Prostate cancer [Unknown]
  - Product prescribing error [Unknown]
